FAERS Safety Report 5800140-6 (Version None)
Quarter: 2008Q3

REPORT INFORMATION
  Report Type: 
  Country: None (occurrence: None)
  Receive Date: 20080702
  Receipt Date: 20080702
  Transmission Date: 20090109
  Serious: Yes (Other)
  Sender: FDA-Public Use
  Company Number: None

PATIENT
  Sex: Female

DRUGS (6)
  1. DIGITEK 0.125MG MYLAN/BERTEK [Suspect]
     Dosage: TAKE 1 TABLET ORALLY DAILY
     Route: 048
  2. SPIRONOLACTONE [Concomitant]
  3. SIMVASTATIN [Concomitant]
  4. CLONIDINE [Concomitant]
  5. CLONAZEPAM [Concomitant]
  6. ALTACE [Concomitant]

REACTIONS (2)
  - DIARRHOEA [None]
  - PHARMACEUTICAL PRODUCT COMPLAINT [None]
